FAERS Safety Report 10307310 (Version 3)
Quarter: 2014Q3

REPORT INFORMATION
  Report Type: Spontaneous
  Country: CN (occurrence: CN)
  Receive Date: 20140716
  Receipt Date: 20140801
  Transmission Date: 20150326
  Serious: Yes (Life-Threatening, Other)
  Sender: FDA-Public Use
  Company Number: CN-ROCHE-1432132

PATIENT
  Age: 30 Year
  Sex: Female

DRUGS (1)
  1. ROCEPHIN [Suspect]
     Active Substance: CEFTRIAXONE SODIUM
     Indication: INTRAUTERINE INFECTION
     Route: 041
     Dates: start: 20140708, end: 20140708

REACTIONS (5)
  - Exposure during pregnancy [Unknown]
  - Anaphylactic shock [Recovering/Resolving]
  - Death neonatal [Unknown]
  - Infection [Recovering/Resolving]
  - Dysphonia [Unknown]

NARRATIVE: CASE EVENT DATE: 20140708
